FAERS Safety Report 6400998-6 (Version None)
Quarter: 2009Q4

REPORT INFORMATION
  Report Type: 
  Country: None (occurrence: None)
  Receive Date: 20091015
  Receipt Date: 20070402
  Transmission Date: 20100525
  Serious: Yes (Disabling)
  Sender: FDA-Public Use
  Company Number: US-ASTRAZENECA-2006UW10767

PATIENT
  Sex: Male
  Weight: 127 kg

DRUGS (7)
  1. SEROQUEL [Suspect]
     Dosage: 200-300MG
     Route: 048
     Dates: start: 20011129, end: 20060331
  2. GEODON [Concomitant]
     Indication: SLEEP DISORDER
     Dates: start: 20041112
  3. GEODON [Concomitant]
     Indication: HALLUCINATION, AUDITORY
     Dates: start: 20041112
  4. GEODON [Concomitant]
     Indication: AFFECTIVE DISORDER
     Dates: start: 20041112
  5. WELLBUTRIN [Concomitant]
     Indication: DEPRESSION
     Route: 048
     Dates: start: 20041029
  6. PAXIL [Concomitant]
     Dates: start: 20011129
  7. METFORMIN HYDROCHLORIDE [Concomitant]
     Dates: start: 20031031

REACTIONS (1)
  - ILL-DEFINED DISORDER [None]
